FAERS Safety Report 16245512 (Version 1)
Quarter: 2019Q2

REPORT INFORMATION
  Report Type: Other
  Country: JP (occurrence: JP)
  Receive Date: 20190426
  Receipt Date: 20190426
  Transmission Date: 20190711
  Serious: Yes (Hospitalization, Other)
  Sender: FDA-Public Use
  Company Number: JP-GE HEALTHCARE LIFE SCIENCES-2019CSU000429

PATIENT

DRUGS (97)
  1. OMNIPAQUE [Suspect]
     Active Substance: IOHEXOL
     Indication: COMPUTERISED TOMOGRAM
     Dosage: 100 ML, SINGLE
     Route: 040
     Dates: start: 20170503, end: 20170503
  2. ALBUMIN [Concomitant]
     Active Substance: ALBUMIN HUMAN
     Dosage: APPROPRIATELY
     Route: 065
     Dates: start: 20170503, end: 20170504
  3. HEPARIN [Concomitant]
     Active Substance: HEPARIN SODIUM
     Dosage: APPROPRIATELY
     Route: 065
     Dates: start: 20170503, end: 20170519
  4. HEPARIN [Concomitant]
     Active Substance: HEPARIN SODIUM
     Dosage: APPROPRIATELY
     Route: 065
     Dates: start: 20170523, end: 20170524
  5. GLUCOSE [Concomitant]
     Active Substance: DEXTROSE
     Dosage: APPROPRIATELY
     Route: 065
     Dates: start: 20170523, end: 20170524
  6. ISOTONIC SODIUM CHLORIDE SOLUTION [Concomitant]
     Active Substance: SODIUM CHLORIDE
     Dosage: APPROPRIATELY
     Route: 065
     Dates: start: 20170503, end: 20170504
  7. LEPETAN [Concomitant]
     Active Substance: BUPRENORPHINE HYDROCHLORIDE
     Dosage: APPROPRIATELY
     Route: 065
     Dates: start: 20170510, end: 20170511
  8. LEPETAN [Concomitant]
     Active Substance: BUPRENORPHINE HYDROCHLORIDE
     Dosage: UNK
     Route: 065
     Dates: start: 20170524, end: 20170524
  9. FRANDOL [Concomitant]
     Active Substance: ISOSORBIDE DINITRATE
     Dosage: APPROPRIATELY
     Route: 065
     Dates: start: 20170506, end: 20170519
  10. IRRADIATED RED BLOOD CELLS-LEUKOCYTES REDUCED [Concomitant]
     Active Substance: HUMAN RED BLOOD CELL
     Dosage: APPROPRIATELY
     Route: 065
     Dates: start: 20170506, end: 20170506
  11. RINDERON V [Concomitant]
     Active Substance: BETAMETHASONE VALERATE
     Dosage: APPROPRIATELY
     Route: 065
     Dates: start: 20170513, end: 20170513
  12. BISONO [Concomitant]
     Active Substance: BISOPROLOL
     Dosage: APPROPRIATELY
     Route: 065
     Dates: start: 20170516, end: 20170519
  13. OMNIPAQUE [Suspect]
     Active Substance: IOHEXOL
     Dosage: 100 ML, SINGLE
     Route: 042
     Dates: start: 20170610, end: 20170610
  14. PREDNISOLONE SODIUM SUCCINATE [Suspect]
     Active Substance: PREDNISOLONE SODIUM SUCCINATE
     Dosage: 10 MG, QD
     Route: 042
     Dates: start: 20170608, end: 20170609
  15. CALCIUM CHLORIDE. [Concomitant]
     Active Substance: CALCIUM CHLORIDE
     Dosage: APPROPRIATELY, INJECTION
     Route: 065
     Dates: start: 20170503, end: 20170503
  16. HEPAFLUSH [Concomitant]
     Active Substance: HEPARIN SODIUM
     Dosage: APPROPRIATELY
     Route: 065
     Dates: start: 20170503, end: 20170503
  17. FENTANYL. [Concomitant]
     Active Substance: FENTANYL
     Dosage: APPROPRIATELY
     Route: 065
     Dates: start: 20170503, end: 20170503
  18. ISOTONIC SODIUM CHLORIDE SOLUTION [Concomitant]
     Active Substance: SODIUM CHLORIDE
     Dosage: APPROPRIATELY
     Route: 065
     Dates: start: 20170509, end: 20170509
  19. LEPETAN [Concomitant]
     Active Substance: BUPRENORPHINE HYDROCHLORIDE
     Dosage: APPROPRIATELY
     Route: 065
     Dates: start: 20170506, end: 20170508
  20. ANCARON [Concomitant]
     Active Substance: AMIODARONE HYDROCHLORIDE
     Dosage: APPROPRIATELY
     Route: 065
     Dates: start: 20170504, end: 20170508
  21. NICORANDIL [Concomitant]
     Active Substance: NICORANDIL
     Dosage: APPROPRIATELY
     Route: 065
     Dates: start: 20170504, end: 20170506
  22. SODIUM CHLORIDE. [Concomitant]
     Active Substance: SODIUM CHLORIDE
     Dosage: APPROPRIATELY
     Route: 065
     Dates: start: 20170522, end: 20170523
  23. SOSEGON [Concomitant]
     Active Substance: PENTAZOCINE
     Dosage: APPROPRIATELY
     Route: 065
     Dates: start: 20170523, end: 20170523
  24. MEROPEN [Suspect]
     Active Substance: MEROPENEM
     Dosage: 500 MG, QD
     Route: 065
     Dates: start: 20170520, end: 20170520
  25. PROPOFOL. [Concomitant]
     Active Substance: PROPOFOL
     Dosage: APPROPRIATELY
     Route: 065
     Dates: start: 20170503, end: 20170503
  26. ALBUMIN [Concomitant]
     Active Substance: ALBUMIN HUMAN
     Dosage: APPROPRIATELY
     Route: 065
     Dates: start: 20170508, end: 20170510
  27. MIDAZOLAM [Concomitant]
     Active Substance: MIDAZOLAM HYDROCHLORIDE
     Dosage: APPROPRIATELY
     Route: 065
     Dates: start: 20170503, end: 20170503
  28. MIDAZOLAM [Concomitant]
     Active Substance: MIDAZOLAM HYDROCHLORIDE
     Dosage: APPROPRIATELY
     Route: 065
     Dates: start: 20170506, end: 20170508
  29. SOLITA-T1 [Concomitant]
     Dosage: APPROPRIATELY
     Route: 065
     Dates: start: 20170503, end: 20170509
  30. LACTEC [Concomitant]
     Active Substance: CALCIUM CHLORIDE ANHYDROUS\POTASSIUM CHLORIDE\SODIUM CHLORIDE\SODIUM LACTATE
     Dosage: APPROPRIATELY
     Route: 065
     Dates: start: 20170503, end: 20170524
  31. MAGNESIUM SULFATE. [Concomitant]
     Active Substance: MAGNESIUM SULFATE
     Dosage: APPROPRIATELY
     Route: 065
     Dates: start: 20170509, end: 20170509
  32. ONOACT [Concomitant]
     Active Substance: LANDIOLOL HYDROCHLORIDE
     Dosage: APPROPRIATELY
     Route: 065
     Dates: start: 20170511, end: 20170512
  33. SERENACE [Concomitant]
     Active Substance: HALOPERIDOL
     Dosage: APPROPRIATELY
     Route: 065
     Dates: start: 20170517, end: 20170517
  34. AMIODARONE HYDROCHLORIDE. [Concomitant]
     Active Substance: AMIODARONE HYDROCHLORIDE
     Dosage: APPROPRIATELY
     Route: 065
     Dates: start: 20170520, end: 20170524
  35. OMNIPAQUE [Suspect]
     Active Substance: IOHEXOL
     Indication: ANGIOCARDIOGRAM
     Dosage: 75 ML, SINGLE
     Route: 013
     Dates: start: 20170504, end: 20170504
  36. OMNIPAQUE [Suspect]
     Active Substance: IOHEXOL
     Indication: PRODUCT USED FOR UNKNOWN INDICATION
     Dosage: 100 ML, SINGLE
     Route: 042
     Dates: start: 20170511, end: 20170511
  37. MEROPEN [Suspect]
     Active Substance: MEROPENEM
     Dosage: 1500 MG, QD
     Route: 065
     Dates: start: 20170508, end: 20170512
  38. PREDNISOLONE SODIUM SUCCINATE [Suspect]
     Active Substance: PREDNISOLONE SODIUM SUCCINATE
     Indication: DRUG ERUPTION
     Dosage: 40 MG, QD
     Route: 042
     Dates: start: 20170524, end: 20170601
  39. PREDNISOLONE SODIUM SUCCINATE [Suspect]
     Active Substance: PREDNISOLONE SODIUM SUCCINATE
     Dosage: 30 MG, QD
     Route: 042
     Dates: start: 20170602, end: 20170603
  40. PREDNISOLONE SODIUM SUCCINATE [Suspect]
     Active Substance: PREDNISOLONE SODIUM SUCCINATE
     Dosage: 20 MG, QD
     Route: 042
     Dates: start: 20170604, end: 20170607
  41. CALCIUM CHLORIDE. [Concomitant]
     Active Substance: CALCIUM CHLORIDE
     Dosage: APPROPRIATELY, INJECTION
     Route: 065
     Dates: start: 20170505, end: 20170505
  42. PROPOFOL. [Concomitant]
     Active Substance: PROPOFOL
     Dosage: APPROPRIATELY
     Route: 065
     Dates: start: 20170510, end: 20170515
  43. SEVOFLURANE. [Concomitant]
     Active Substance: SEVOFLURANE
     Dosage: APPROPRIATELY
     Dates: start: 20170503, end: 20170503
  44. SEISHOKU [Concomitant]
     Active Substance: SODIUM CHLORIDE
     Dosage: APPROPRIATELY
     Route: 065
     Dates: start: 20170523, end: 20170524
  45. LEPETAN [Concomitant]
     Active Substance: BUPRENORPHINE HYDROCHLORIDE
     Dosage: APPROPRIATELY
     Route: 065
     Dates: start: 20170504, end: 20170504
  46. IRRADIATED RED BLOOD CELLS-LEUKOCYTES REDUCED [Concomitant]
     Active Substance: HUMAN RED BLOOD CELL
     Dosage: APPROPRIATELY
     Route: 065
     Dates: start: 20170524, end: 20170524
  47. AMIPAREN [Concomitant]
     Active Substance: AMINO ACIDS
     Dosage: APPROPRIATELY
     Route: 065
     Dates: start: 20170510, end: 20170524
  48. FAMOTIDINE. [Concomitant]
     Active Substance: FAMOTIDINE
     Dosage: APPROPRIATELY
     Route: 065
     Dates: start: 20170511, end: 20170516
  49. INTRALIPOS [Concomitant]
     Active Substance: SOYBEAN OIL
     Dosage: APPROPRIATELY
     Route: 065
     Dates: start: 20170524, end: 20170524
  50. SODIUM CHLORIDE. [Concomitant]
     Active Substance: SODIUM CHLORIDE
     Dosage: APPROPRIATELY
     Route: 065
     Dates: start: 20170521, end: 20170524
  51. MEROPEN [Suspect]
     Active Substance: MEROPENEM
     Indication: CHOLECYSTITIS INFECTIVE
     Dosage: 1500 MG, QD
     Route: 065
     Dates: start: 20170503, end: 20170503
  52. MEROPEN [Suspect]
     Active Substance: MEROPENEM
     Dosage: 1500 MG, QD
     Route: 065
     Dates: start: 20170521, end: 20170525
  53. INOVAN [Concomitant]
     Active Substance: DOPAMINE HYDROCHLORIDE
     Dosage: APPROPRIATELY
     Route: 065
     Dates: start: 20170503, end: 20170505
  54. XYLOCAINE [Concomitant]
     Active Substance: LIDOCAINE HYDROCHLORIDE
     Dosage: APPROPRIATELY
     Route: 065
     Dates: start: 20170503, end: 20170504
  55. VECURONIUM [Concomitant]
     Active Substance: VECURONIUM BROMIDE
     Dosage: APPROPRIATELY
     Route: 065
     Dates: start: 20170503, end: 20170504
  56. OMEPRAZOLE. [Concomitant]
     Active Substance: OMEPRAZOLE
     Dosage: APPROPRIATELY
     Route: 065
     Dates: start: 20170503, end: 20170510
  57. DOBUPUM [Concomitant]
     Active Substance: DOBUTAMINE HYDROCHLORIDE
     Dosage: APPROPRIATELY
     Route: 065
     Dates: start: 20170504, end: 20170505
  58. ANCARON [Concomitant]
     Active Substance: AMIODARONE HYDROCHLORIDE
     Dosage: APPROPRIATELY
     Route: 065
     Dates: start: 20170523, end: 20170524
  59. VOLUVEN [Concomitant]
     Active Substance: HYDROXYETHYL STARCH 130/0.4
     Dosage: APPROPRIATELY
     Route: 065
     Dates: start: 20170504, end: 20170505
  60. TARIVID [Concomitant]
     Active Substance: OFLOXACIN
     Dosage: APPROPRIATELY
     Route: 065
     Dates: start: 20170508, end: 20170508
  61. ELEJECT [Concomitant]
     Dosage: APPROPRIATELY
     Route: 065
     Dates: start: 20170510, end: 20170524
  62. OMNIPAQUE [Suspect]
     Active Substance: IOHEXOL
     Dosage: 100 ML, SINGLE
     Route: 042
     Dates: start: 20170523, end: 20170523
  63. ELIQUIS [Concomitant]
     Active Substance: APIXABAN
     Dosage: APPROPRIATELY, TABLET
     Route: 048
     Dates: start: 20170519, end: 20170524
  64. ELIQUIS [Concomitant]
     Active Substance: APIXABAN
     Dosage: APPROPRIATELY, TABLET
     Route: 048
     Dates: start: 20170608, end: 20170613
  65. PROPOFOL. [Concomitant]
     Active Substance: PROPOFOL
     Dosage: APPROPRIATELY
     Route: 065
     Dates: start: 20170503, end: 20170506
  66. PROTAMINE SULFATE. [Concomitant]
     Active Substance: PROTAMINE SULFATE
     Dosage: APPROPRIATELY
     Route: 065
     Dates: start: 20170503, end: 20170503
  67. ALBUMIN [Concomitant]
     Active Substance: ALBUMIN HUMAN
     Dosage: APPROPRIATELY
     Route: 065
     Dates: start: 20170506, end: 20170506
  68. GLUCOSE [Concomitant]
     Active Substance: DEXTROSE
     Dosage: APPROPRIATELY
     Route: 065
     Dates: start: 20170512, end: 20170515
  69. ANCARON [Concomitant]
     Active Substance: AMIODARONE HYDROCHLORIDE
     Dosage: APPROPRIATELY
     Route: 065
     Dates: start: 20170512, end: 20170515
  70. POPIYODON [Concomitant]
     Dosage: APPROPRIATELY
     Route: 065
     Dates: start: 20170504, end: 20170504
  71. SUBVITAN [Concomitant]
     Dosage: APPROPRIATELY
     Route: 065
     Dates: start: 20170507, end: 20170510
  72. VITAJECT [Concomitant]
     Active Substance: CYANOCOBALAMIN\PYRIDOXAMINE HYDROCHLORIDE\THIAMINE HYDROCHLORIDE
     Dosage: APPROPRIATELY
     Route: 065
     Dates: start: 20170510, end: 20170524
  73. INTRALIPOS [Concomitant]
     Active Substance: SOYBEAN OIL
     Dosage: APPROPRIATELY
     Route: 065
     Dates: start: 20170511, end: 20170522
  74. SERENACE [Concomitant]
     Active Substance: HALOPERIDOL
     Dosage: APPROPRIATELY
     Route: 065
     Dates: start: 20170519, end: 20170520
  75. HEPAFLUSH [Concomitant]
     Active Substance: HEPARIN SODIUM
     Dosage: APPROPRIATELY
     Route: 065
     Dates: start: 20170521, end: 20170521
  76. XYLOCAINE [Concomitant]
     Active Substance: LIDOCAINE HYDROCHLORIDE
     Dosage: APPROPRIATELY
     Route: 065
     Dates: start: 20170521, end: 20170521
  77. XYLOCAINE [Concomitant]
     Active Substance: LIDOCAINE HYDROCHLORIDE
     Dosage: APPROPRIATELY
     Route: 065
     Dates: start: 20170523, end: 20170523
  78. WATER FOR INJECTION [Concomitant]
     Active Substance: WATER
     Dosage: APPROPRIATELY
     Route: 048
     Dates: start: 20170503, end: 20170504
  79. NORADRENALINE [Concomitant]
     Active Substance: NOREPINEPHRINE
     Dosage: APPROPRIATELY
     Route: 065
     Dates: start: 20170503, end: 20170508
  80. GLUCOSE [Concomitant]
     Active Substance: DEXTROSE
     Dosage: APPROPRIATELY
     Route: 065
     Dates: start: 20170503, end: 20170508
  81. ISOTONIC SODIUM CHLORIDE SOLUTION [Concomitant]
     Active Substance: SODIUM CHLORIDE
     Dosage: APPROPRIATELY
     Route: 065
     Dates: start: 20170523, end: 20170523
  82. TAMBOCOR [Concomitant]
     Active Substance: FLECAINIDE ACETATE
     Dosage: APPROPRIATELY
     Route: 065
     Dates: start: 20170504, end: 20170504
  83. MAGNESIUM SULFATE. [Concomitant]
     Active Substance: MAGNESIUM SULFATE
     Dosage: APPROPRIATELY
     Route: 065
     Dates: start: 20170504, end: 20170504
  84. ADETPHOS-L [Concomitant]
     Dosage: APPROPRIATELY
     Route: 065
     Dates: start: 20170509, end: 20170509
  85. SOLITA-T NO.2 [Concomitant]
     Dosage: APPROPRIATELY
     Route: 065
     Dates: start: 20170509, end: 20170510
  86. SODIUM CHLORIDE. [Concomitant]
     Active Substance: SODIUM CHLORIDE
     Dosage: APPROPRIATELY
     Route: 065
     Dates: start: 20170520, end: 20170520
  87. UROGRAFIN [Concomitant]
     Active Substance: DIATRIZOATE MEGLUMINE\DIATRIZOATE SODIUM
     Dosage: APPROPRIATELY
     Route: 065
     Dates: start: 20170523, end: 20170523
  88. MEROPEN [Suspect]
     Active Substance: MEROPENEM
     Dosage: 1000 MG, QD
     Route: 065
     Dates: start: 20170504, end: 20170507
  89. MEROPEN [Suspect]
     Active Substance: MEROPENEM
     Dosage: 500 MG, QD
     Route: 065
     Dates: start: 20170526, end: 20170526
  90. PREDNISOLONE SODIUM SUCCINATE [Suspect]
     Active Substance: PREDNISOLONE SODIUM SUCCINATE
     Dosage: 20 MG, QD
     Route: 042
     Dates: start: 20170610, end: 20170620
  91. XYLOCAINE [Concomitant]
     Active Substance: LIDOCAINE HYDROCHLORIDE
     Dosage: APPROPRIATELY
     Route: 065
     Dates: start: 20170515, end: 20170515
  92. SEISHOKU [Concomitant]
     Active Substance: SODIUM CHLORIDE
     Dosage: APPROPRIATELY
     Route: 065
     Dates: start: 20170503, end: 20170520
  93. PHYSIOLOGICAL SALINE SOLUTION [Concomitant]
     Active Substance: SODIUM CHLORIDE
     Dosage: APPROPRIATELY
     Route: 065
     Dates: start: 20170503, end: 20170512
  94. PHYSIOLOGICAL SALINE SOLUTION [Concomitant]
     Active Substance: SODIUM CHLORIDE
     Dosage: APPROPRIATELY
     Route: 065
     Dates: start: 20170520, end: 20170524
  95. LEPETAN [Concomitant]
     Active Substance: BUPRENORPHINE HYDROCHLORIDE
     Dosage: APPROPRIATELY
     Route: 065
     Dates: start: 20170515, end: 20170515
  96. NITOROL [Concomitant]
     Active Substance: ISOSORBIDE DINITRATE
     Dosage: APPROPRIATELY
     Route: 065
     Dates: start: 20170504, end: 20170504
  97. HICALIQ [Concomitant]
     Active Substance: CALCIUM GLUCONATE\DEXTROSE\MAGNESIUM SULFATE\POTASSIUM ACETATE\POTASSIUM PHOSPHATE, DIBASIC\ZINC SULFATE
     Dosage: APPROPRIATELY
     Route: 065
     Dates: start: 20170510, end: 20170524

REACTIONS (2)
  - Stevens-Johnson syndrome [Recovering/Resolving]
  - Small intestinal perforation [Not Recovered/Not Resolved]

NARRATIVE: CASE EVENT DATE: 20170524
